FAERS Safety Report 8993940 (Version 1)
Quarter: 2013Q1

REPORT INFORMATION
  Report Type: Spontaneous
  Country: US (occurrence: US)
  Receive Date: 20130102
  Receipt Date: 20130102
  Transmission Date: 20140127
  Serious: Yes (Other)
  Sender: FDA-Public Use
  Company Number: US-AMGEN-USASP2012083497

PATIENT
  Age: 51 Year
  Sex: Female

DRUGS (7)
  1. ENBREL [Suspect]
     Indication: RHEUMATOID ARTHRITIS
     Dosage: 50 MG, EVERY 6 DAYS
     Dates: start: 20000101
  2. METHOTREXATE [Concomitant]
     Dosage: UNK
     Dates: start: 2002, end: 2003
  3. ARAVA [Concomitant]
     Dosage: UNK
     Dates: start: 200203, end: 2004
  4. PLAQUENIL                          /00072602/ [Concomitant]
     Dosage: UNK
     Dates: start: 2011, end: 2011
  5. SULFASALAZINE [Concomitant]
     Dosage: 1000 MG, BID
     Dates: start: 1999
  6. KINERET [Concomitant]
     Dosage: UNK
  7. REMICADE [Concomitant]
     Dosage: UNK

REACTIONS (11)
  - Crohn^s disease [Not Recovered/Not Resolved]
  - White blood cell count decreased [Recovered/Resolved]
  - Pain [Recovered/Resolved]
  - Arthralgia [Recovered/Resolved]
  - Swelling [Recovered/Resolved]
  - Mobility decreased [Recovered/Resolved]
  - Rheumatoid arthritis [Recovered/Resolved]
  - Influenza like illness [Recovered/Resolved]
  - Injection site discomfort [Not Recovered/Not Resolved]
  - Injection site pain [Recovered/Resolved]
  - Injection site inflammation [Recovered/Resolved]
